FAERS Safety Report 14595997 (Version 2)
Quarter: 2018Q2

REPORT INFORMATION
  Report Type: Spontaneous
  Country: US (occurrence: US)
  Receive Date: 20180303
  Receipt Date: 20180418
  Transmission Date: 20180711
  Serious: No
  Sender: FDA-Public Use
  Company Number: US-JNJFOC-20180208394

PATIENT
  Sex: Male

DRUGS (3)
  1. TACROLIMUS. [Concomitant]
     Active Substance: TACROLIMUS
     Indication: PSORIASIS
     Route: 061
     Dates: start: 2017
  2. TREMFYA [Suspect]
     Active Substance: GUSELKUMAB
     Indication: PSORIASIS
     Route: 058
     Dates: start: 20171128
  3. CALCIPOTRIENE. [Concomitant]
     Active Substance: CALCIPOTRIENE
     Indication: PSORIASIS
     Route: 061
     Dates: start: 2017

REACTIONS (2)
  - Skin exfoliation [Not Recovered/Not Resolved]
  - Dry skin [Not Recovered/Not Resolved]
